FAERS Safety Report 18355662 (Version 3)
Quarter: 2021Q2

REPORT INFORMATION
  Report Type: Spontaneous
  Country: DE (occurrence: DE)
  Receive Date: 20201007
  Receipt Date: 20210415
  Transmission Date: 20210717
  Serious: Yes (Other)
  Sender: FDA-Public Use
  Company Number: DE-TOPROL-202000027

PATIENT
  Sex: Male

DRUGS (8)
  1. RAMIPRIL. [Suspect]
     Active Substance: RAMIPRIL
     Route: 048
     Dates: start: 202003, end: 202003
  2. AMITRIPTYLINE [Concomitant]
     Active Substance: AMITRIPTYLINE
     Route: 048
  3. SPINRAZA [Suspect]
     Active Substance: NUSINERSEN
     Route: 037
     Dates: start: 20190527
  4. CAPROS [Concomitant]
     Route: 048
  5. FINASTERIDE. [Concomitant]
     Active Substance: FINASTERIDE
     Route: 065
  6. OMEPRAZOLE. [Concomitant]
     Active Substance: OMEPRAZOLE
     Route: 048
  7. SPINRAZA [Suspect]
     Active Substance: NUSINERSEN
     Route: 037
  8. METOPROLOL. [Suspect]
     Active Substance: METOPROLOL
     Dosage: STARTED WITH A HALF TABLET, INCREASED TO ONE TABLET, THEREAFTER TO 2
     Dates: start: 2020, end: 202007

REACTIONS (10)
  - Fatigue [Recovered/Resolved]
  - Headache [Recovered/Resolved]
  - Epistaxis [Not Recovered/Not Resolved]
  - Dizziness [Recovered/Resolved]
  - Motor dysfunction [Not Recovered/Not Resolved]
  - Drug ineffective [Recovered/Resolved]
  - Hypertension [Not Recovered/Not Resolved]
  - Post lumbar puncture syndrome [Recovered/Resolved]
  - Photophobia [Recovered/Resolved]
  - Eye haemorrhage [Not Recovered/Not Resolved]

NARRATIVE: CASE EVENT DATE: 2020
